FAERS Safety Report 17773112 (Version 4)
Quarter: 2020Q2

REPORT INFORMATION
  Report Type: Report from Study
  Country: None (occurrence: JP)
  Receive Date: 20200512
  Receipt Date: 20200618
  Transmission Date: 20200714
  Serious: Yes (Death)
  Sender: FDA-Public Use
  Company Number: JP-ABBVIE-20K-087-3401107-00

PATIENT
  Age: 61 Year
  Sex: Male
  Weight: 49 kg

DRUGS (11)
  1. DUODOPA [Suspect]
     Active Substance: CARBIDOPA\LEVODOPA
     Indication: PARKINSON^S DISEASE
     Dosage: MD : 6 ML?CD : 1.4 ML/HR ? 16 HRS?ED : 1 ML/UNIT?20 MG/ML 5 MG/ML
     Route: 050
     Dates: start: 20191003, end: 20191005
  2. DUODOPA [Suspect]
     Active Substance: CARBIDOPA\LEVODOPA
     Dosage: MD : 6 ML?CD : 2.0 ML/HR ? 16 HRS?ED : 1 ML/UNIT
     Route: 050
     Dates: start: 20191008, end: 20191010
  3. MAGNESIUM OXIDE. [Concomitant]
     Active Substance: MAGNESIUM OXIDE
     Indication: PRODUCT USED FOR UNKNOWN INDICATION
     Route: 048
     Dates: end: 20200420
  4. ELOBIXIBAT HYDRATE [Concomitant]
     Active Substance: ELOBIXIBAT
     Indication: PRODUCT USED FOR UNKNOWN INDICATION
     Dates: start: 20191216, end: 20200420
  5. DUODOPA [Suspect]
     Active Substance: CARBIDOPA\LEVODOPA
     Dosage: MD : 6 ML?CD : 2.8 ML/HR?ED : 1 ML/UNIT
     Route: 050
     Dates: start: 20191010, end: 20191015
  6. LUBIPROSTONE [Concomitant]
     Active Substance: LUBIPROSTONE
     Indication: PRODUCT USED FOR UNKNOWN INDICATION
     Route: 048
     Dates: start: 20191025, end: 20191215
  7. BROTIZOLAM [Concomitant]
     Active Substance: BROTIZOLAM
     Indication: PRODUCT USED FOR UNKNOWN INDICATION
     Route: 048
     Dates: start: 20191008, end: 20200420
  8. DUODOPA [Suspect]
     Active Substance: CARBIDOPA\LEVODOPA
     Dosage: MD: 6 ML?CD: 4.2 ML/HR ? 16 HRS
     Route: 050
     Dates: start: 20191015, end: 20191016
  9. DUODOPA [Suspect]
     Active Substance: CARBIDOPA\LEVODOPA
     Dosage: MD : 6 ML?CD : 3.6 ML/HR ? 16 HRS
     Route: 050
     Dates: start: 20191016, end: 20191018
  10. DUODOPA [Suspect]
     Active Substance: CARBIDOPA\LEVODOPA
     Dosage: MD: 6 ML?MD : 6 ML?CD : 1.7 ML/HR ? 16 HRS?ED : 1 ML/UNIT
     Route: 050
     Dates: start: 20191005, end: 20191008
  11. DUODOPA [Suspect]
     Active Substance: CARBIDOPA\LEVODOPA
     Dosage: MD: 6 ML?CD: 3.9 ML/HR ? 16 HRS
     Route: 050
     Dates: start: 20191018, end: 20200420

REACTIONS (3)
  - Mobility decreased [Unknown]
  - Dyskinesia [Recovering/Resolving]
  - Completed suicide [Fatal]

NARRATIVE: CASE EVENT DATE: 20191015
